FAERS Safety Report 19240497 (Version 6)
Quarter: 2022Q1

REPORT INFORMATION
  Report Type: Other
  Country: US (occurrence: None)
  Receive Date: 20210511
  Receipt Date: 20220211
  Transmission Date: 20220423
  Serious: Yes (Hospitalization, Other)
  Sender: FDA-Public Use
  Company Number: US-ROCHE-2825086

PATIENT
  Sex: Female
  Weight: 81.266 kg

DRUGS (36)
  1. ACTEMRA [Suspect]
     Active Substance: TOCILIZUMAB
     Indication: Giant cell arteritis
     Dosage: INJECT IN SKIN, FOR 3 MONTHS?NEXT DATE OF TREATMENT: 11/JAN/2018
     Route: 058
  2. ACTEMRA [Suspect]
     Active Substance: TOCILIZUMAB
  3. ACTEMRA [Suspect]
     Active Substance: TOCILIZUMAB
  4. ACTEMRA [Suspect]
     Active Substance: TOCILIZUMAB
     Indication: Polymyalgia rheumatica
     Dosage: INJECT 162MG (0.9ML) SUBCUTANEOUSLY EVERY 7 DAY(S)
     Route: 058
  5. ACTEMRA [Suspect]
     Active Substance: TOCILIZUMAB
  6. ACTEMRA [Suspect]
     Active Substance: TOCILIZUMAB
  7. ACTEMRA [Suspect]
     Active Substance: TOCILIZUMAB
     Indication: Chronic myelomonocytic leukaemia
  8. ACTEMRA [Suspect]
     Active Substance: TOCILIZUMAB
  9. ACTEMRA [Suspect]
     Active Substance: TOCILIZUMAB
  10. ACTEMRA [Suspect]
     Active Substance: TOCILIZUMAB
     Indication: Adverse drug reaction
  11. ACTEMRA [Suspect]
     Active Substance: TOCILIZUMAB
  12. ACTEMRA [Suspect]
     Active Substance: TOCILIZUMAB
  13. ACTEMRA [Suspect]
     Active Substance: TOCILIZUMAB
     Indication: Spinal pain
  14. ACTEMRA [Suspect]
     Active Substance: TOCILIZUMAB
  15. ACTEMRA [Suspect]
     Active Substance: TOCILIZUMAB
  16. ACTEMRA [Suspect]
     Active Substance: TOCILIZUMAB
     Indication: Pain
  17. ACTEMRA [Suspect]
     Active Substance: TOCILIZUMAB
  18. ACTEMRA [Suspect]
     Active Substance: TOCILIZUMAB
  19. ACTEMRA [Suspect]
     Active Substance: TOCILIZUMAB
     Indication: Back pain
  20. ACTEMRA [Suspect]
     Active Substance: TOCILIZUMAB
  21. ACTEMRA [Suspect]
     Active Substance: TOCILIZUMAB
  22. VALIUM [Suspect]
     Active Substance: DIAZEPAM
     Indication: Product used for unknown indication
     Route: 065
  23. ECOTRIN [Concomitant]
     Active Substance: ASPIRIN
     Route: 048
  24. LIORESAL [Concomitant]
     Active Substance: BACLOFEN
     Dosage: AT BEDTIME
     Route: 048
  25. BIOTIN [Concomitant]
     Active Substance: BIOTIN
     Route: 048
  26. CALCIUM CARBONATE [Concomitant]
     Active Substance: CALCIUM CARBONATE
     Route: 048
  27. VITAMIN D3 [Concomitant]
     Active Substance: CHOLECALCIFEROL
     Dosage: 2000 UNIT
     Route: 048
  28. ACIDOPHILUS PROBIOTIC BLEND [Concomitant]
     Dosage: 30 CAPSULE
     Route: 048
  29. FISH OIL [Concomitant]
     Active Substance: FISH OIL
     Dosage: 360 TO  1200 MG CAPSULE
     Route: 048
  30. PRILOSEC [Concomitant]
     Active Substance: OMEPRAZOLE MAGNESIUM
     Route: 048
  31. DELTASONE [Concomitant]
     Active Substance: PREDNISONE
     Dosage: 5 MG TABLET TOTAL 9 MG
     Route: 048
  32. PERI-COLACE [Concomitant]
     Active Substance: CASANTHRANOL\DOCUSATE SODIUM
     Route: 048
  33. HERBALS\TURMERIC [Concomitant]
     Active Substance: HERBALS\TURMERIC
     Route: 048
  34. PREDNISONE [Concomitant]
     Active Substance: PREDNISONE
  35. PREDNISONE [Concomitant]
     Active Substance: PREDNISONE
  36. VALIUM [Concomitant]
     Active Substance: DIAZEPAM

REACTIONS (3)
  - Blindness unilateral [Unknown]
  - Stasis dermatitis [Unknown]
  - Peripheral venous disease [Unknown]
